FAERS Safety Report 5063418-2 (Version None)
Quarter: 2006Q3

REPORT INFORMATION
  Report Type: 
  Country: None (occurrence: None)
  Receive Date: 20060727
  Receipt Date: 20060621
  Transmission Date: 20061208
  Serious: Yes (Other)
  Sender: FDA-Public Use
  Company Number: PHRM2006FR01884

PATIENT
  Age: 10 Year
  Sex: Male
  Weight: 35 kg

DRUGS (1)
  1. RITALIN [Suspect]
     Indication: ATTENTION DEFICIT/HYPERACTIVITY DISORDER
     Dosage: 20 MG/DAY
     Route: 048
     Dates: start: 20050101, end: 20060501

REACTIONS (4)
  - ACCOMMODATION DISORDER [None]
  - IIIRD NERVE PARESIS [None]
  - MYDRIASIS [None]
  - PUPILS UNEQUAL [None]
